FAERS Safety Report 9957491 (Version 2)
Quarter: 2014Q1

REPORT INFORMATION
  Report Type: Report from Study
  Country: US (occurrence: US)
  Receive Date: 20140304
  Receipt Date: 20140304
  Transmission Date: 20141002
  Serious: No
  Sender: FDA-Public Use
  Company Number: US-ABBVIE-13P-163-1080091-00

PATIENT
  Age: 65 Year
  Sex: Male

DRUGS (20)
  1. HUMIRA [Suspect]
     Indication: RHEUMATOID ARTHRITIS
     Dates: start: 20130408
  2. ENBREL [Suspect]
     Indication: PRODUCT USED FOR UNKNOWN INDICATION
  3. METHOTREXATE [Concomitant]
     Indication: RHEUMATOID ARTHRITIS
     Dosage: EVERY MONDAY
  4. PREDNISONE [Concomitant]
     Indication: RHEUMATOID ARTHRITIS
  5. QUINIPRIL [Concomitant]
     Indication: HYPERTENSION
  6. NORVASC [Concomitant]
     Indication: HYPERTENSION
     Dosage: 5-10MG
  7. ZOFRAN [Concomitant]
     Indication: NAUSEA
  8. FUROSEMIDE [Concomitant]
     Indication: PRODUCT USED FOR UNKNOWN INDICATION
  9. POTASSIUM [Concomitant]
     Indication: PRODUCT USED FOR UNKNOWN INDICATION
  10. FOLIC ACID [Concomitant]
     Indication: POLYMEDICATION
  11. OPANA ER [Concomitant]
     Indication: PAIN
  12. OPANA [Concomitant]
     Indication: PAIN
     Dosage: AS NEEDED
  13. FLAXSEED OIL [Concomitant]
     Indication: PRODUCT USED FOR UNKNOWN INDICATION
     Dosage: DAILY
  14. KRILL OIL [Concomitant]
     Indication: PRODUCT USED FOR UNKNOWN INDICATION
     Dosage: DAILY
  15. QUNOL [Concomitant]
     Indication: CARDIOVASCULAR EVENT PROPHYLAXIS
     Dosage: DAILY
  16. VITAMIN C [Concomitant]
     Indication: PRODUCT USED FOR UNKNOWN INDICATION
  17. VITAMIN D NOS [Concomitant]
     Indication: PRODUCT USED FOR UNKNOWN INDICATION
  18. ASTAXATHIN [Concomitant]
     Indication: SUPPLEMENTATION THERAPY
  19. OSTEOMOVE [Concomitant]
     Indication: SUPPLEMENTATION THERAPY
  20. CURAMIN [Concomitant]
     Indication: SUPPLEMENTATION THERAPY

REACTIONS (19)
  - Unevaluable event [Not Recovered/Not Resolved]
  - Diverticulitis [Not Recovered/Not Resolved]
  - Incorrect route of drug administration [Unknown]
  - Incorrect route of drug administration [Unknown]
  - Arthralgia [Not Recovered/Not Resolved]
  - Injection site pain [Not Recovered/Not Resolved]
  - Nausea [Not Recovered/Not Resolved]
  - Sinus disorder [Recovered/Resolved]
  - Musculoskeletal pain [Not Recovered/Not Resolved]
  - Dizziness [Not Recovered/Not Resolved]
  - Pain [Not Recovered/Not Resolved]
  - Pain [Recovering/Resolving]
  - Contusion [Recovered/Resolved]
  - Mass [Recovering/Resolving]
  - Pallor [Not Recovered/Not Resolved]
  - Arthralgia [Not Recovered/Not Resolved]
  - Pain [Unknown]
  - Oedema peripheral [Unknown]
  - Cardiac failure congestive [Unknown]
